FAERS Safety Report 5685266-2 (Version None)
Quarter: 2008Q1

REPORT INFORMATION
  Report Type: 
  Country: None (occurrence: None)
  Receive Date: 20080328
  Receipt Date: 20080317
  Transmission Date: 20080703
  Serious: Yes (Hospitalization, Other)
  Sender: FDA-Public Use
  Company Number: NL-PFIZER INC-2008020469

PATIENT
  Sex: Male
  Weight: 82 kg

DRUGS (3)
  1. LYRICA [Suspect]
     Indication: NEURALGIA
     Route: 048
     Dates: start: 20071217, end: 20080120
  2. QVAR 40 [Concomitant]
  3. ALL OTHER THERAPEUTIC PRODUCTS [Concomitant]

REACTIONS (16)
  - ANGINA UNSTABLE [None]
  - ARRHYTHMIA [None]
  - ARTERIOSPASM CORONARY [None]
  - BACK PAIN [None]
  - BLOOD PRESSURE FLUCTUATION [None]
  - CARDIAC STRESS TEST ABNORMAL [None]
  - DEPERSONALISATION [None]
  - DIZZINESS [None]
  - FATIGUE [None]
  - INCREASED APPETITE [None]
  - MUSCLE SPASMS [None]
  - MYALGIA [None]
  - MYOCARDIAL ISCHAEMIA [None]
  - NERVOUS SYSTEM DISORDER [None]
  - PERIPHERAL COLDNESS [None]
  - VISION BLURRED [None]
